FAERS Safety Report 6023383-8 (Version None)
Quarter: 2008Q4

REPORT INFORMATION
  Report Type: 
  Country: None (occurrence: None)
  Receive Date: 20081223
  Receipt Date: 20081208
  Transmission Date: 20090506
  Serious: Yes (Hospitalization)
  Sender: FDA-Public Use
  Company Number: 2008S1021828

PATIENT
  Age: 31 Year
  Sex: Female

DRUGS (8)
  1. METRONIDAZOLE [Suspect]
     Indication: PROPHYLAXIS
  2. PROPRANOLOL [Suspect]
     Indication: BASEDOW'S DISEASE
     Dosage: 10 MG; Q8H
  3. CARBIMAZOLE (CARBIMAZOLE) [Suspect]
     Indication: BASEDOW'S DISEASE
     Dosage: 5 MG; DAILY
  4. CEFADROXIL [Suspect]
     Indication: BASEDOW'S DISEASE
     Dosage: 5 MG; DAILY
  5. ENOXAPARIN SODIUM [Suspect]
     Indication: THROMBOSIS PROPHYLAXIS
     Dosage: 40 MG; DAILY
  6. DIGOXIN [Suspect]
     Indication: ATRIAL FIBRILLATION
  7. PREDNISOLONE [Suspect]
     Indication: DRUG USE FOR UNKNOWN INDICATION
     Dosage: 40 MG; DAILY
  8. PROPYLTHIOURACIL [Suspect]
     Indication: DRUG USE FOR UNKNOWN INDICATION
     Dosage: 40 MG; DAILY

REACTIONS (6)
  - DRUG EXPOSURE DURING PREGNANCY [None]
  - HEPATIC ENZYME ABNORMAL [None]
  - LEUKOPENIA [None]
  - NEUTROPENIA [None]
  - RASH [None]
  - THROMBOCYTOPENIA [None]
